FAERS Safety Report 17600383 (Version 1)
Quarter: 2020Q1

REPORT INFORMATION
  Report Type: Spontaneous
  Country: FR (occurrence: FR)
  Receive Date: 20200330
  Receipt Date: 20200330
  Transmission Date: 20200409
  Serious: Yes (Hospitalization)
  Sender: FDA-Public Use
  Company Number: FR-MYLANLABS-2020M1032602

PATIENT
  Age: 38 Year
  Sex: Female
  Weight: 74 kg

DRUGS (4)
  1. TRANXENE [Suspect]
     Active Substance: CLORAZEPATE DIPOTASSIUM
     Indication: SCHIZOAFFECTIVE DISORDER DEPRESSIVE TYPE
     Dosage: 10 MILLIGRAM, QD
     Route: 048
     Dates: start: 201910
  2. FLUOXETINE [Suspect]
     Active Substance: FLUOXETINE HYDROCHLORIDE
     Indication: SCHIZOAFFECTIVE DISORDER DEPRESSIVE TYPE
     Dosage: 40 MILLIGRAM, QD
     Route: 048
  3. HALDOL [Suspect]
     Active Substance: HALOPERIDOL
     Indication: SCHIZOAFFECTIVE DISORDER DEPRESSIVE TYPE
     Dosage: 15 MILLIGRAM, QD
     Route: 048
     Dates: start: 201910, end: 20191120
  4. IMOVANE [Suspect]
     Active Substance: ZOPICLONE
     Indication: SCHIZOAFFECTIVE DISORDER DEPRESSIVE TYPE
     Dosage: 7.5 MILLIGRAM, QD
     Route: 048
     Dates: start: 201910

REACTIONS (5)
  - Suicide attempt [Recovered/Resolved]
  - Somnolence [Recovering/Resolving]
  - Condition aggravated [Recovering/Resolving]
  - Decreased appetite [Recovering/Resolving]
  - Dyskinesia [Recovering/Resolving]

NARRATIVE: CASE EVENT DATE: 201911
